FAERS Safety Report 10643901 (Version 3)
Quarter: 2014Q4

REPORT INFORMATION
  Report Type: Spontaneous
  Country: FR (occurrence: FR)
  Receive Date: 20141210
  Receipt Date: 20141217
  Transmission Date: 20150529
  Serious: Yes (Hospitalization)
  Sender: FDA-Public Use
  Company Number: FR-BAXTER-2014BAX070062

PATIENT
  Age: 35 Year
  Sex: Male

DRUGS (11)
  1. DOXORUBICINE ACCORD [Suspect]
     Active Substance: DOXORUBICIN
     Route: 042
     Dates: start: 20140926
  2. METHYLPREDNISOLONE. [Concomitant]
     Active Substance: METHYLPREDNISOLONE
     Indication: PREMEDICATION
     Dosage: 2 COURSES
     Route: 065
  3. NEULASTA [Concomitant]
     Active Substance: PEGFILGRASTIM
     Indication: PRODUCT USED FOR UNKNOWN INDICATION
     Dosage: INJECTION/ 1ST COURSE DAY 4
     Route: 065
  4. UROMITEXAN [Concomitant]
     Active Substance: MESNA
     Dosage: 5000 MG/M2
     Route: 042
     Dates: start: 20140926
  5. ONDANSETRON [Concomitant]
     Active Substance: ONDANSETRON
     Indication: PREMEDICATION
     Dosage: 2 COURSES
     Route: 065
  6. HOLOXAN 2000 MG, POUDRE POUR USAGE PARENT?RAL [Suspect]
     Active Substance: IFOSFAMIDE
     Dosage: 5000 MG/M2
     Route: 042
     Dates: start: 20141014
  7. UROMITEXAN [Concomitant]
     Active Substance: MESNA
     Indication: TOXICITY TO VARIOUS AGENTS
     Dosage: 5000 MG/M2
     Route: 042
     Dates: start: 20141014
  8. HOLOXAN 2000 MG, POUDRE POUR USAGE PARENT?RAL [Suspect]
     Active Substance: IFOSFAMIDE
     Indication: SARCOMA
     Dosage: 5000 MG/M2
     Route: 042
     Dates: start: 20140926
  9. HOLOXAN 1000 MG, POUDRE POUR SOLUTION INJECTABLE [Suspect]
     Active Substance: IFOSFAMIDE
     Indication: SARCOMA
     Dosage: 5000 MG/M2
     Route: 042
     Dates: start: 20140926
  10. HOLOXAN 1000 MG, POUDRE POUR SOLUTION INJECTABLE [Suspect]
     Active Substance: IFOSFAMIDE
     Dosage: 5000 MG/M2
     Route: 042
     Dates: start: 20141014
  11. DOXORUBICINE ACCORD [Suspect]
     Active Substance: DOXORUBICIN
     Indication: SARCOMA
     Route: 065
     Dates: start: 20141014

REACTIONS (1)
  - Cystitis haemorrhagic [Recovering/Resolving]

NARRATIVE: CASE EVENT DATE: 20141020
